FAERS Safety Report 11327916 (Version 2)
Quarter: 2015Q3

REPORT INFORMATION
  Report Type: Report from Study
  Country: US (occurrence: US)
  Receive Date: 20150731
  Receipt Date: 20150812
  Transmission Date: 20151125
  Serious: Yes (Life-Threatening)
  Sender: FDA-Public Use
  Company Number: US-MERCK-1507USA014098

PATIENT

DRUGS (3)
  1. TEMODAR [Suspect]
     Active Substance: TEMOZOLOMIDE
     Indication: GLIOBLASTOMA
     Dosage: 200 MG/M2, QD, ON DAYS 1-5 (STANDARD DOSE) UP TO 4 CYLES
     Route: 048
  2. IRINOTECAN HYDROCHLORIDE. [Suspect]
     Active Substance: IRINOTECAN HYDROCHLORIDE
     Indication: GLIOBLASTOMA
     Dosage: 125 MG/M2 OR 34 MG/M2 EVERY 2 WEEKS, 28 DAY CYCLE DEPENDENT OF ANTIEPILEPTIC DRUG
     Route: 042
  3. AVASTIN [Suspect]
     Active Substance: BEVACIZUMAB
     Indication: GLIOBLASTOMA
     Dosage: 10 MG/KG, EVERY 2 WEEKS ON A 28 DAY CYCLE
     Route: 042

REACTIONS (7)
  - Thrombocytopenia [Unknown]
  - Anaemia [Unknown]
  - Hypokalaemia [Unknown]
  - Neutropenia [Unknown]
  - Embolism venous [Unknown]
  - Colitis [Unknown]
  - Leukopenia [Unknown]
